FAERS Safety Report 24450967 (Version 2)
Quarter: 2024Q4

REPORT INFORMATION
  Report Type: Spontaneous
  Country: ES (occurrence: ES)
  Receive Date: 20241017
  Receipt Date: 20241105
  Transmission Date: 20250115
  Serious: Yes (Hospitalization, Other)
  Sender: NOVARTIS
  Company Number: ES-002147023-NVSC2024ES202759

PATIENT
  Age: 53 Year
  Sex: Male

DRUGS (2)
  1. KESIMPTA [Suspect]
     Active Substance: OFATUMUMAB
     Indication: Multiple sclerosis
     Dosage: 20 MG, Q4W
     Route: 058
     Dates: start: 20240422
  2. KESIMPTA [Suspect]
     Active Substance: OFATUMUMAB
     Indication: Relapsing-remitting multiple sclerosis

REACTIONS (11)
  - Pneumonia [Unknown]
  - COVID-19 [Unknown]
  - SARS-CoV-2 test positive [Recovered/Resolved]
  - Pneumonia necrotising [Recovered/Resolved]
  - Malaise [Recovered/Resolved]
  - Dyspnoea at rest [Recovered/Resolved]
  - Pleuritic pain [Recovered/Resolved]
  - Hyperhidrosis [Recovered/Resolved]
  - Hypophonesis [Recovered/Resolved]
  - Crepitations [Recovered/Resolved]
  - Pleural effusion [Recovered/Resolved]

NARRATIVE: CASE EVENT DATE: 20240625
